FAERS Safety Report 14542204 (Version 1)
Quarter: 2018Q1

REPORT INFORMATION
  Report Type: Spontaneous
  Country: ID (occurrence: ID)
  Receive Date: 20180216
  Receipt Date: 20180216
  Transmission Date: 20180509
  Serious: Yes (Hospitalization)
  Sender: FDA-Public Use
  Company Number: ID-IMPAX LABORATORIES, INC-2018-IPXL-00479

PATIENT
  Age: 37 Year
  Sex: Male

DRUGS (3)
  1. DOBUTAMIN [Suspect]
     Active Substance: DOBUTAMINE HYDROCHLORIDE
     Indication: ACUTE CORONARY SYNDROME
     Dosage: UNK
     Route: 041
  2. ADRENACLICK [Suspect]
     Active Substance: EPINEPHRINE
     Indication: ACUTE CORONARY SYNDROME
     Dosage: UNK
     Route: 041
  3. STREPTOKINASE [Suspect]
     Active Substance: STREPTOKINASE
     Indication: THROMBOLYSIS
     Dosage: UNK
     Route: 065

REACTIONS (1)
  - Pneumonia [Recovered/Resolved]
